FAERS Safety Report 6140304-8 (Version None)
Quarter: 2009Q2

REPORT INFORMATION
  Report Type: 
  Country: None (occurrence: None)
  Receive Date: 20090401
  Receipt Date: 20090326
  Transmission Date: 20091009
  Serious: Yes (Other)
  Sender: FDA-Public Use
  Company Number: PHEH2009US03205

PATIENT

DRUGS (1)
  1. RECLAST [Suspect]

REACTIONS (1)
  - CARDIAC DISORDER [None]
